FAERS Safety Report 8993325 (Version 2)
Quarter: 2013Q1

REPORT INFORMATION
  Report Type: Spontaneous
  Country: US (occurrence: US)
  Receive Date: 20130102
  Receipt Date: 20130107
  Transmission Date: 20140127
  Serious: No
  Sender: FDA-Public Use
  Company Number: US-PFIZER INC-2012334321

PATIENT
  Age: 47 Year
  Sex: Male
  Weight: 90.7 kg

DRUGS (3)
  1. ZOLOFT [Suspect]
     Indication: ANXIETY
     Dosage: 150 MG, DAILY
  2. MILK THISTLE [Interacting]
     Dosage: UNK
     Dates: start: 2012
  3. CINNAMON [Concomitant]
     Dosage: UNK
     Dates: start: 2012

REACTIONS (2)
  - Headache [Unknown]
  - Drug interaction [Unknown]
